FAERS Safety Report 5308980-7 (Version None)
Quarter: 2007Q2

REPORT INFORMATION
  Report Type: 
  Country: None (occurrence: None)
  Receive Date: 20070426
  Receipt Date: 20070415
  Transmission Date: 20071010
  Serious: Yes (Death, Disabling, Other)
  Sender: FDA-Public Use
  Company Number: US-PFIZER INC-2007030159

PATIENT
  Sex: Male

DRUGS (12)
  1. AMLODIPINE [Suspect]
     Indication: HYPERTENSION
     Dates: start: 20070101
  2. LAXATIVES [Suspect]
  3. THYROID HORMONES [Concomitant]
     Indication: THYROID DISORDER
  4. LASIX [Concomitant]
  5. TENORMIN [Concomitant]
  6. VERELAN [Concomitant]
  7. IMDUR [Concomitant]
  8. LOTREL [Concomitant]
  9. OTHER HYPNOTICS AND SEDATIVES [Concomitant]
  10. ANTIHISTAMINES [Concomitant]
  11. LOMOTIL [Concomitant]
  12. ANTI-DIABETICS [Concomitant]

REACTIONS (12)
  - AGITATION [None]
  - CHROMATURIA [None]
  - CIRCULATORY COLLAPSE [None]
  - DIARRHOEA [None]
  - DYSPNOEA [None]
  - EYE DISORDER [None]
  - EYE SWELLING [None]
  - LIP SWELLING [None]
  - MYDRIASIS [None]
  - OEDEMA PERIPHERAL [None]
  - RASH [None]
  - WHEEZING [None]
